FAERS Safety Report 22313126 (Version 1)
Quarter: 2023Q2

REPORT INFORMATION
  Report Type: Report from Study
  Country: US (occurrence: US)
  Receive Date: 20230512
  Receipt Date: 20230512
  Transmission Date: 20230721
  Serious: No
  Sender: FDA-Public Use
  Company Number: US-002147023-NVSC2023US106351

PATIENT
  Sex: Female

DRUGS (2)
  1. CLOBETASOL PROPIONATE [Suspect]
     Active Substance: CLOBETASOL PROPIONATE
     Indication: Psoriasis
     Route: 065
     Dates: start: 20211228, end: 20221009
  2. VENLAFAXINE [Suspect]
     Active Substance: VENLAFAXINE HYDROCHLORIDE
     Indication: Psoriasis
     Route: 065

REACTIONS (4)
  - Pruritus [Unknown]
  - Back pain [Unknown]
  - Skin exfoliation [Unknown]
  - Drug ineffective [Unknown]
